FAERS Safety Report 26103715 (Version 1)
Quarter: 2025Q4

REPORT INFORMATION
  Report Type: Spontaneous
  Country: CN (occurrence: CN)
  Receive Date: 20251129
  Receipt Date: 20251129
  Transmission Date: 20260117
  Serious: Yes (Other)
  Sender: AUROBINDO
  Company Number: CN-AUROBINDO-AUR-APL-2025-059912

PATIENT
  Age: 3 Month
  Sex: Female
  Weight: 4.8 kg

DRUGS (3)
  1. VALGANCICLOVIR [Suspect]
     Active Substance: VALGANCICLOVIR
     Indication: Congenital cytomegalovirus infection
     Dosage: UNK
  2. VALGANCICLOVIR [Suspect]
     Active Substance: VALGANCICLOVIR
     Dosage: CONTINUED TRANSFUSIONS
  3. GANCICLOVIR [Suspect]
     Active Substance: GANCICLOVIR
     Indication: Congenital cytomegalovirus infection
     Dosage: UNK
     Route: 065

REACTIONS (1)
  - Drug ineffective [Unknown]
